FAERS Safety Report 10708373 (Version 4)
Quarter: 2015Q1

REPORT INFORMATION
  Report Type: Report from Study
  Country: HR (occurrence: HR)
  Receive Date: 20150113
  Receipt Date: 20150216
  Transmission Date: 20150721
  Serious: Yes (Life-Threatening, Other)
  Sender: FDA-Public Use
  Company Number: HR-ABBVIE-14P-216-1320046-00

PATIENT
  Sex: Female

DRUGS (1)
  1. DUODOPA [Suspect]
     Active Substance: CARBIDOPA\LEVODOPA
     Indication: PARKINSON^S DISEASE
     Dosage: 2,3 ML
     Route: 050
     Dates: start: 20141203

REACTIONS (2)
  - Klebsiella infection [Recovered/Resolved]
  - Catheter site discharge [Unknown]

NARRATIVE: CASE EVENT DATE: 20141209
